FAERS Safety Report 5929796-4 (Version None)
Quarter: 2008Q4

REPORT INFORMATION
  Report Type: 
  Country: None (occurrence: None)
  Receive Date: 20081024
  Receipt Date: 20081016
  Transmission Date: 20090506
  Serious: Yes (Disabling)
  Sender: FDA-Public Use
  Company Number: GB-JNJFOC-20081004024

PATIENT
  Age: 48 Year
  Sex: Female
  Weight: 43 kg

DRUGS (5)
  1. TOPIRAMATE [Suspect]
     Indication: MIGRAINE PROPHYLAXIS
     Route: 048
  2. AMITRIPTYLINE HCL [Concomitant]
     Indication: INTERVERTEBRAL DISC DEGENERATION
     Route: 048
  3. ASPRIRIN [Concomitant]
     Indication: MIGRAINE
     Route: 048
  4. DICLOFENAC [Concomitant]
     Indication: INTERVERTEBRAL DISC DEGENERATION
     Route: 048
  5. GABAPENTIN [Concomitant]
     Indication: INTERVERTEBRAL DISC DEGENERATION
     Route: 048

REACTIONS (3)
  - BLADDER DISORDER [None]
  - HYPOAESTHESIA [None]
  - SENSORY DISTURBANCE [None]
